FAERS Safety Report 11067627 (Version 1)
Quarter: 2015Q2

REPORT INFORMATION
  Report Type: Spontaneous
  Country: US (occurrence: None)
  Receive Date: 20150424
  Receipt Date: 20150424
  Transmission Date: 20150821
  Serious: Yes (Hospitalization)
  Sender: FDA-Public Use
  Company Number: None

PATIENT
  Age: 62 Year
  Sex: Female
  Weight: 94.1 kg

DRUGS (9)
  1. HARVONI [Suspect]
     Active Substance: LEDIPASVIR\SOFOSBUVIR
     Indication: HEPATITIS C
     Route: 048
     Dates: start: 20150107
  2. ATORVASTATIN [Concomitant]
     Active Substance: ATORVASTATIN
  3. TRAMADOL [Concomitant]
     Active Substance: TRAMADOL
  4. INSULIN [Concomitant]
     Active Substance: INSULIN NOS
  5. IMODIUM [Concomitant]
     Active Substance: LOPERAMIDE HYDROCHLORIDE
  6. AMLODIPINE [Concomitant]
     Active Substance: AMLODIPINE BESYLATE
  7. METOPROLOL [Concomitant]
     Active Substance: METOPROLOL
  8. GABAPENTIN. [Concomitant]
     Active Substance: GABAPENTIN
  9. PLAVIX [Concomitant]
     Active Substance: CLOPIDOGREL BISULFATE

REACTIONS (1)
  - Cardiac failure congestive [None]

NARRATIVE: CASE EVENT DATE: 20150303
